FAERS Safety Report 12826200 (Version 1)
Quarter: 2016Q4

REPORT INFORMATION
  Report Type: Spontaneous
  Country: US (occurrence: US)
  Receive Date: 20161006
  Receipt Date: 20161006
  Transmission Date: 20170207
  Serious: No
  Sender: FDA-Public Use
  Company Number: US-GILEAD-2016-0236388

PATIENT
  Age: 61 Year
  Sex: Male

DRUGS (1)
  1. HARVONI [Suspect]
     Active Substance: LEDIPASVIR\SOFOSBUVIR
     Indication: HEPATITIS C
     Dosage: UNK
     Route: 048
     Dates: start: 20160211, end: 20160425

REACTIONS (5)
  - Dyspnoea [Unknown]
  - Ammonia increased [Unknown]
  - Ocular icterus [Not Recovered/Not Resolved]
  - Urine abnormality [Not Recovered/Not Resolved]
  - Metabolic disorder [Unknown]
